FAERS Safety Report 16818468 (Version 1)
Quarter: 2019Q3

REPORT INFORMATION
  Report Type: Spontaneous
  Country: US (occurrence: US)
  Receive Date: 20190917
  Receipt Date: 20190917
  Transmission Date: 20191005
  Serious: No
  Sender: FDA-Public Use
  Company Number: US-SA-2019SA258778

PATIENT
  Age: 74 Year
  Sex: Male
  Weight: 86 kg

DRUGS (1)
  1. PRALUENT [Suspect]
     Active Substance: ALIROCUMAB
     Indication: CARDIOVASCULAR DISORDER
     Dosage: 1 DF, QOW
     Route: 058
     Dates: start: 20181001

REACTIONS (1)
  - Cardiac operation [Unknown]
